FAERS Safety Report 10592848 (Version 1)
Quarter: 2014Q4

REPORT INFORMATION
  Report Type: Spontaneous
  Country: US (occurrence: None)
  Receive Date: 20141118
  Receipt Date: 20141118
  Transmission Date: 20150529
  Serious: Yes (Life-Threatening)
  Sender: FDA-Public Use
  Company Number: None

PATIENT
  Age: 15 Year
  Sex: Male
  Weight: 74 kg

DRUGS (3)
  1. ZANAMIVIR [Suspect]
     Active Substance: ZANAMIVIR
     Indication: PNEUMONIA
     Dosage: 3 X 200 MG VIALS
     Route: 042
     Dates: start: 20141114, end: 20141117
  2. ZANAMIVIR [Suspect]
     Active Substance: ZANAMIVIR
     Indication: ACUTE RESPIRATORY DISTRESS SYNDROME
     Dosage: 3 X 200 MG VIALS
     Route: 042
     Dates: start: 20141114, end: 20141117
  3. ZANAMIVIR [Suspect]
     Active Substance: ZANAMIVIR
     Indication: INFLUENZA
     Dosage: 3 X 200 MG VIALS
     Route: 042
     Dates: start: 20141114, end: 20141117

REACTIONS (3)
  - Pupil fixed [None]
  - Septic embolus [None]
  - Haemorrhage intracranial [None]

NARRATIVE: CASE EVENT DATE: 20141117
